FAERS Safety Report 12309023 (Version 1)
Quarter: 2016Q2

REPORT INFORMATION
  Report Type: Spontaneous
  Country: US (occurrence: None)
  Receive Date: 20160426
  Receipt Date: 20160426
  Transmission Date: 20160815
  Serious: Yes (Other)
  Sender: FDA-Public Use
  Company Number: None

PATIENT
  Age: 46 Year
  Sex: Female
  Weight: 79.38 kg

DRUGS (17)
  1. CREST PRO-HEALTH (CETYLPYRIDINIUM CHLORIDE) [Suspect]
     Active Substance: CETYLPYRIDINIUM CHLORIDE
     Indication: GINGIVITIS
     Dosage: 4 TEASPOON(S) TWICE A DAY GARGLE/MOUTH RINSE
     Route: 048
     Dates: start: 20160417, end: 20160420
  2. IBUPROFEN. [Concomitant]
     Active Substance: IBUPROFEN
  3. XANAX XR [Concomitant]
     Active Substance: ALPRAZOLAM
  4. BENADRYL [Concomitant]
     Active Substance: DIPHENHYDRAMINE HYDROCHLORIDE
  5. JANUVIA [Concomitant]
     Active Substance: SITAGLIPTIN PHOSPHATE
  6. ZOLOFT [Concomitant]
     Active Substance: SERTRALINE HYDROCHLORIDE
  7. OMEGA-3 FATTY ACIDS (PHARMACEUTICAL GRADE, PURE EPA) [Concomitant]
  8. FIBER SUPPLEMENT [Concomitant]
  9. ADVAIR DISKUS [Concomitant]
     Active Substance: FLUTICASONE PROPIONATE\SALMETEROL XINAFOATE
  10. ALLEGRA [Concomitant]
     Active Substance: FEXOFENADINE HYDROCHLORIDE
  11. CYMBALTA [Concomitant]
     Active Substance: DULOXETINE HYDROCHLORIDE
  12. TYLENOL [Concomitant]
     Active Substance: ACETAMINOPHEN
  13. ALEVE [Concomitant]
     Active Substance: NAPROXEN SODIUM
  14. GENERIC OTC MULTI-VITAMIN/MULTI MINERAL SUPPLEMENT [Concomitant]
  15. PROBIOTICS [Concomitant]
     Active Substance: PROBIOTICS NOS
  16. FLONASE [Concomitant]
     Active Substance: FLUTICASONE PROPIONATE
  17. XANAX [Concomitant]
     Active Substance: ALPRAZOLAM

REACTIONS (8)
  - Infection [None]
  - Dysgeusia [None]
  - Tongue ulceration [None]
  - Glossodynia [None]
  - Ageusia [None]
  - Hypoaesthesia oral [None]
  - Swollen tongue [None]
  - Tongue discolouration [None]

NARRATIVE: CASE EVENT DATE: 20160417
